FAERS Safety Report 22085448 (Version 1)
Quarter: 2023Q1

REPORT INFORMATION
  Report Type: Spontaneous
  Country: US (occurrence: None)
  Receive Date: 20230308
  Receipt Date: 20230308
  Transmission Date: 20230418
  Serious: Yes (Hospitalization)
  Sender: FDA-Public Use
  Company Number: None

PATIENT
  Age: 71 Year
  Sex: Male
  Weight: 98.43 kg

DRUGS (14)
  1. INLYTA [Suspect]
     Active Substance: AXITINIB
     Indication: Renal cancer
     Dosage: FREQUENCY : TWICE A DAY;?
     Route: 048
  2. BUDESONIDE [Concomitant]
     Active Substance: BUDESONIDE
  3. CHOLESTYRAMINE [Concomitant]
     Active Substance: CHOLESTYRAMINE
  4. FUROSEMIDE [Concomitant]
     Active Substance: FUROSEMIDE
  5. KEYTRUDA [Concomitant]
     Active Substance: PEMBROLIZUMAB
  6. LISINOPRIL [Concomitant]
     Active Substance: LISINOPRIL
  7. METOPROLOL TARTRATE [Concomitant]
     Active Substance: METOPROLOL TARTRATE
  8. OMEPRAZOLE [Concomitant]
     Active Substance: OMEPRAZOLE
  9. PEPCID [Concomitant]
     Active Substance: FAMOTIDINE
  10. PROCHLORPERAZINE MALEATE [Concomitant]
     Active Substance: PROCHLORPERAZINE MALEATE
  11. SORAFENIB [Concomitant]
     Active Substance: SORAFENIB
  12. SPIRONOLACTONE [Concomitant]
     Active Substance: SPIRONOLACTONE
  13. VALSARTAN [Concomitant]
     Active Substance: VALSARTAN
  14. VITAMIN D [Concomitant]
     Active Substance: VITAMIN D NOS

REACTIONS (1)
  - Dehydration [None]
